FAERS Safety Report 6718221-1 (Version None)
Quarter: 2010Q2

REPORT INFORMATION
  Report Type: 
  Country: None (occurrence: None)
  Receive Date: 20100510
  Receipt Date: 20100430
  Transmission Date: 20101027
  Serious: Yes (Other)
  Sender: FDA-Public Use
  Company Number: US-ALLERGAN-0901466US

PATIENT
  Age: 71 Year
  Sex: Female
  Weight: 69.388 kg

DRUGS (8)
  1. ALPHAGAN [Suspect]
     Indication: GLAUCOMA
     Route: 047
  2. LUMIGAN [Suspect]
     Indication: DRUG USE FOR UNKNOWN INDICATION
  3. XALATAN [Suspect]
     Indication: GLAUCOMA
     Dosage: 1 GTT, QD
     Route: 047
  4. COSOPT [Suspect]
     Indication: GLAUCOMA
     Route: 047
  5. LORAZEPAM [Concomitant]
  6. CLONAZEPAM [Concomitant]
     Dosage: UNK, PRN
  7. MIRTAZAPINE [Concomitant]
     Dosage: UNK, QHS
  8. CITALOPRAM HYDROBROMIDE [Concomitant]

REACTIONS (5)
  - DRUG INEFFECTIVE [None]
  - INTRAOCULAR PRESSURE FLUCTUATION [None]
  - INTRAOCULAR PRESSURE INCREASED [None]
  - LEUKAEMIA [None]
  - THYROID CANCER [None]
